FAERS Safety Report 4288550-2 (Version None)
Quarter: 2004Q1

REPORT INFORMATION
  Report Type: 
  Country: None (occurrence: None)
  Receive Date: 20040205
  Receipt Date: 20040119
  Transmission Date: 20041129
  Serious: Yes (Other)
  Sender: FDA-Public Use
  Company Number: CEL-2004-00082-ROC (0)

PATIENT
  Age: 19 Year
  Sex: Male

DRUGS (3)
  1. DELSYM [Suspect]
     Indication: DRUG ABUSER
     Dosage: 5 OZ (5 OZ, ONCE), PO
     Route: 048
     Dates: start: 20040116, end: 20040116
  2. DEXOL [Suspect]
     Indication: DRUG ABUSER
     Dosage: 1.5 ML (1.5 ML, ONCE), PO
     Route: 048
     Dates: start: 20040116, end: 20040116
  3. CANNABIS (CANNABIS) [Suspect]
     Indication: DRUG ABUSER
     Dosage: ONCE, I
     Dates: start: 20040116, end: 20040116

REACTIONS (13)
  - ABDOMINAL PAIN UPPER [None]
  - ANXIETY [None]
  - CHEST PAIN [None]
  - FEELING ABNORMAL [None]
  - FEELING HOT [None]
  - HALLUCINATION [None]
  - HEART RATE INCREASED [None]
  - HYPERHIDROSIS [None]
  - MIOSIS [None]
  - NERVOUSNESS [None]
  - OLIGURIA [None]
  - TREMOR [None]
  - VOMITING [None]
